FAERS Safety Report 25577627 (Version 1)
Quarter: 2025Q3

REPORT INFORMATION
  Report Type: Spontaneous
  Country: US (occurrence: US)
  Receive Date: 20250718
  Receipt Date: 20250718
  Transmission Date: 20251020
  Serious: No
  Sender: NOVO NORDISK
  Company Number: US-NOVOPROD-1272358

PATIENT
  Sex: Female

DRUGS (1)
  1. RYBELSUS [Suspect]
     Active Substance: SEMAGLUTIDE
     Indication: Diabetes mellitus
     Route: 048
     Dates: start: 202308

REACTIONS (9)
  - Ehlers-Danlos syndrome [Unknown]
  - Tremor [Unknown]
  - Unevaluable event [Unknown]
  - Nervousness [Unknown]
  - Brain fog [Unknown]
  - Feeling abnormal [Unknown]
  - Attention deficit hyperactivity disorder [Unknown]
  - Fatigue [Unknown]
  - Asthenia [Unknown]
